FAERS Safety Report 24071397 (Version 1)
Quarter: 2024Q3

REPORT INFORMATION
  Report Type: Report from Study
  Country: BR (occurrence: BR)
  Receive Date: 20240710
  Receipt Date: 20240710
  Transmission Date: 20241017
  Serious: No
  Sender: ROCHE
  Company Number: BR-ROCHE-3506416

PATIENT
  Age: 29 Year
  Sex: Female
  Weight: 56.0 kg

DRUGS (2)
  1. EVRYSDI [Suspect]
     Active Substance: RISDIPLAM
     Indication: Spinal muscular atrophy
     Dosage: STRENGTH: 0.75 MG/ML ?DOSE 6.6 ML
     Route: 065
     Dates: start: 20230113
  2. EVRYSDI [Suspect]
     Active Substance: RISDIPLAM
     Route: 065

REACTIONS (1)
  - Weight abnormal [Unknown]
